FAERS Safety Report 18689656 (Version 2)
Quarter: 2021Q1

REPORT INFORMATION
  Report Type: Spontaneous
  Country: US (occurrence: US)
  Receive Date: 20201231
  Receipt Date: 20210205
  Transmission Date: 20210419
  Serious: Yes (Hospitalization)
  Sender: FDA-Public Use
  Company Number: US-TEVA-2020-US-1863174

PATIENT
  Age: 17 Year
  Sex: Male

DRUGS (7)
  1. ACETAMINOPHEN. [Suspect]
     Active Substance: ACETAMINOPHEN
     Indication: PYREXIA
     Dosage: UNKNOWN
     Route: 065
  2. CRIZANLIZUMAB [Suspect]
     Active Substance: CRIZANLIZUMAB
     Indication: PAIN
     Dosage: 300 MG (5 MG/KG) INFUSED OVER 30 MINUTES BY PERIPHERAL IV
     Route: 041
  3. CRIZANLIZUMAB [Suspect]
     Active Substance: CRIZANLIZUMAB
     Indication: SICKLE CELL ANAEMIA WITH CRISIS
  4. NORMAL SALINE [Suspect]
     Active Substance: SODIUM CHLORIDE
     Indication: PAIN
     Dosage: UNKNOWN
     Route: 040
  5. KETOROLAC [Suspect]
     Active Substance: KETOROLAC TROMETHAMINE
     Indication: PYREXIA
     Dosage: UNKNOWN
     Route: 065
  6. MORPHINE [Suspect]
     Active Substance: MORPHINE
     Indication: PAIN
     Dosage: UNKNOWN
     Route: 042
  7. DIPHENHYDRAMINE. [Concomitant]
     Active Substance: DIPHENHYDRAMINE
     Indication: PAIN
     Dosage: UNKNOWN
     Route: 065

REACTIONS (6)
  - Infusion related reaction [Recovering/Resolving]
  - Haemolysis [Recovering/Resolving]
  - Drug ineffective [Unknown]
  - Nightmare [Unknown]
  - Hypertransaminasaemia [Recovering/Resolving]
  - Blood phosphorus decreased [Recovering/Resolving]
